FAERS Safety Report 4336389-1 (Version None)
Quarter: 2004Q2

REPORT INFORMATION
  Report Type: 
  Country: None (occurrence: None)
  Receive Date: 20040412
  Receipt Date: 20040402
  Transmission Date: 20050107
  Serious: Yes (Other)
  Sender: FDA-Public Use
  Company Number: PHNU2004DE01427

PATIENT
  Age: 70 Year
  Sex: Male

DRUGS (4)
  1. CO-DIOVAN [Suspect]
     Indication: HYPERTENSION
     Dosage: 1 DF, QD
     Route: 048
     Dates: start: 20030101
  2. ARELIX ^AVENTIS PHARMA^ [Concomitant]
     Dosage: 0.5 DF/D
  3. ASPIRIN [Concomitant]
  4. ANTIGOUT PREPARATIONS [Concomitant]
     Indication: HYPERURICAEMIA

REACTIONS (3)
  - ARRHYTHMIA [None]
  - CONDITION AGGRAVATED [None]
  - HEART RATE IRREGULAR [None]
